FAERS Safety Report 9919959 (Version 1)
Quarter: 2014Q1

REPORT INFORMATION
  Report Type: Spontaneous
  Country: US (occurrence: US)
  Receive Date: 20140224
  Receipt Date: 20140224
  Transmission Date: 20141002
  Serious: Yes (Hospitalization)
  Sender: FDA-Public Use
  Company Number: US-ABBVIE-14P-163-1202325-00

PATIENT
  Age: 45 Year
  Sex: Male
  Weight: 67.19 kg

DRUGS (16)
  1. HUMIRA [Suspect]
     Indication: PSORIATIC ARTHROPATHY
     Dosage: ONE DOSE
     Dates: start: 20131114, end: 20131114
  2. HUMIRA [Suspect]
     Indication: PSORIASIS
  3. ASPIRIN [Concomitant]
     Indication: PRODUCT USED FOR UNKNOWN INDICATION
  4. DOCUSATE SODIUM [Concomitant]
     Indication: PRODUCT USED FOR UNKNOWN INDICATION
  5. FLORASTOR [Concomitant]
     Indication: PRODUCT USED FOR UNKNOWN INDICATION
  6. LEVOTHYROXINE SODIUM [Concomitant]
     Indication: PRODUCT USED FOR UNKNOWN INDICATION
  7. METOPROLOL TARTRATE [Concomitant]
     Indication: PRODUCT USED FOR UNKNOWN INDICATION
  8. MIRALAX [Concomitant]
     Indication: PRODUCT USED FOR UNKNOWN INDICATION
  9. MYLANTA [Concomitant]
     Indication: PRODUCT USED FOR UNKNOWN INDICATION
  10. NITROSTAT [Concomitant]
     Indication: PRODUCT USED FOR UNKNOWN INDICATION
  11. PEPCID [Concomitant]
     Indication: PRODUCT USED FOR UNKNOWN INDICATION
  12. PLAVIX [Concomitant]
     Indication: PRODUCT USED FOR UNKNOWN INDICATION
  13. METHOCARBAMOL [Concomitant]
     Indication: PRODUCT USED FOR UNKNOWN INDICATION
  14. SENOKOT [Concomitant]
     Indication: PRODUCT USED FOR UNKNOWN INDICATION
  15. SIMVASTATIN [Concomitant]
     Indication: PRODUCT USED FOR UNKNOWN INDICATION
  16. ZINC [Concomitant]
     Indication: PRODUCT USED FOR UNKNOWN INDICATION

REACTIONS (10)
  - Spinal cord compression [Recovered/Resolved]
  - Meningitis [Recovered/Resolved]
  - Bone abscess [Recovered/Resolved]
  - Meningitis staphylococcal [Recovered/Resolved]
  - Bone abscess [Recovered/Resolved]
  - Unresponsive to stimuli [Recovered/Resolved]
  - Treatment noncompliance [Recovered/Resolved]
  - Chest pain [Recovered/Resolved]
  - Acute myocardial infarction [Recovered/Resolved]
  - Psoriasis [Not Recovered/Not Resolved]
